FAERS Safety Report 7703556-6 (Version None)
Quarter: 2011Q3

REPORT INFORMATION
  Report Type: 
  Country: None (occurrence: None)
  Receive Date: 20110823
  Receipt Date: 20110814
  Transmission Date: 20111222
  Serious: Yes (Hospitalization)
  Sender: FDA-Public Use
  Company Number: PHHY2011CL74030

PATIENT
  Age: 28 Year
  Sex: Male

DRUGS (2)
  1. CYCLOSPORINE [Suspect]
     Indication: STEM CELL TRANSPLANT
     Dosage: UNK UKN, UNK
  2. STEROID TAPER [Concomitant]
     Dosage: UNK UKN, UNK

REACTIONS (2)
  - RENAL FAILURE CHRONIC [None]
  - THROMBOTIC THROMBOCYTOPENIC PURPURA [None]
